FAERS Safety Report 14224392 (Version 1)
Quarter: 2017Q4

REPORT INFORMATION
  Report Type: Spontaneous
  Country: FI (occurrence: FI)
  Receive Date: 20171126
  Receipt Date: 20171126
  Transmission Date: 20180321
  Serious: Yes (Hospitalization, Disabling)
  Sender: FDA-Public Use
  Company Number: FI-AMGEN-FINSP2017171509

PATIENT
  Age: 47 Year
  Sex: Male
  Weight: 87 kg

DRUGS (10)
  1. KYPROLIS [Suspect]
     Active Substance: CARFILZOMIB
     Indication: PLASMA CELL MYELOMA
     Dosage: 112 MG, ON DAY 1, 2, 8, 9, 15 AND 16
     Route: 042
     Dates: start: 20171005, end: 2017
  2. KYPROLIS [Suspect]
     Active Substance: CARFILZOMIB
     Dosage: 56 MG/M2, DAY 1 AND 2
     Route: 042
     Dates: start: 20171102, end: 20171103
  3. ZOVIRAX [Concomitant]
     Active Substance: ACYCLOVIR
     Indication: PROPHYLAXIS
     Dosage: 400 MG, BID
     Route: 048
     Dates: start: 20171102, end: 20171112
  4. ZOVIRAX [Concomitant]
     Active Substance: ACYCLOVIR
     Indication: HERPES ZOSTER
     Dosage: 1000 MG, TID
     Route: 042
     Dates: start: 20171112, end: 20171122
  5. KYPROLIS [Suspect]
     Active Substance: CARFILZOMIB
     Dosage: 56 MG/M2, DAY 8 AND 9
     Route: 042
     Dates: start: 20171109, end: 20171110
  6. ZOVIRAX [Concomitant]
     Active Substance: ACYCLOVIR
     Dosage: 400 MG, BID
     Route: 048
     Dates: start: 20171123
  7. ZOLEDRONIC ACID SANDOZ [Concomitant]
     Indication: PLASMA CELL MYELOMA
     Dosage: 100 MG, Q4WK
     Route: 042
     Dates: start: 20170327
  8. PENTACARINAT [Concomitant]
     Active Substance: PENTAMIDINE ISETHIONATE
     Indication: PROPHYLAXIS
     Dosage: 100 MG, Q4WK (INHALATION)
     Dates: start: 20170110
  9. KYPROLIS [Suspect]
     Active Substance: CARFILZOMIB
     Dosage: 112 MG, ON DAY 1, 2, 8, 9, 15 AND 16
     Route: 042
     Dates: start: 201711, end: 20171112
  10. DEXAMETHASONE. [Concomitant]
     Active Substance: DEXAMETHASONE
     Indication: PLASMA CELL MYELOMA
     Dosage: 19.5 MG, ON DAY 1, 2, 8, 9, 15, 16, 22 AND 23
     Dates: start: 20171005, end: 20171112

REACTIONS (1)
  - Herpes zoster [Recovered/Resolved]

NARRATIVE: CASE EVENT DATE: 20171112
